FAERS Safety Report 25570560 (Version 1)
Quarter: 2025Q3

REPORT INFORMATION
  Report Type: Spontaneous
  Country: CN (occurrence: CN)
  Receive Date: 20250717
  Receipt Date: 20250717
  Transmission Date: 20251020
  Serious: Yes (Other)
  Sender: ROCHE
  Company Number: CN-ROCHE-10000335909

PATIENT
  Age: 68 Year
  Sex: Female

DRUGS (6)
  1. HERCEPTIN [Suspect]
     Active Substance: TRASTUZUMAB
     Indication: Colon cancer metastatic
     Dosage: NMPA APPROVAL NO. SJ20220017
     Route: 058
     Dates: start: 20250704, end: 20250704
  2. HERCEPTIN [Suspect]
     Active Substance: TRASTUZUMAB
     Indication: Ureteric cancer metastatic
  3. PERJETA [Suspect]
     Active Substance: PERTUZUMAB
     Indication: Colon cancer metastatic
     Dosage: NMPA APPROVAL NO. SJ20180029
     Route: 042
     Dates: start: 20250704, end: 20250704
  4. PERJETA [Suspect]
     Active Substance: PERTUZUMAB
     Indication: Ureteric cancer metastatic
  5. IRINOTECAN HYDROCHLORIDE [Suspect]
     Active Substance: IRINOTECAN HYDROCHLORIDE
     Indication: Colon cancer metastatic
     Route: 042
     Dates: start: 20250704, end: 20250704
  6. IRINOTECAN HYDROCHLORIDE [Suspect]
     Active Substance: IRINOTECAN HYDROCHLORIDE
     Indication: Ureteric cancer metastatic

REACTIONS (2)
  - Diarrhoea [Recovering/Resolving]
  - Off label use [Unknown]

NARRATIVE: CASE EVENT DATE: 20250706
